FAERS Safety Report 7016296-6 (Version None)
Quarter: 2010Q3

REPORT INFORMATION
  Report Type: 
  Country: None (occurrence: None)
  Receive Date: 20100909
  Receipt Date: 20100301
  Transmission Date: 20110219
  Serious: No
  Sender: FDA-Public Use
  Company Number: 2010SP012917

PATIENT
  Age: 39 Year
  Sex: Female

DRUGS (3)
  1. SAPHRIS [Suspect]
     Indication: SCHIZOAFFECTIVE DISORDER
     Dosage: 5 MG; SL
     Route: 060
     Dates: start: 20100222, end: 20100225
  2. XANAX (CON.) [Concomitant]
  3. CELEXA (CON.) [Concomitant]

REACTIONS (3)
  - HYPERTROPHY OF TONGUE PAPILLAE [None]
  - SWOLLEN TONGUE [None]
  - TONGUE BLISTERING [None]
